FAERS Safety Report 13936662 (Version 2)
Quarter: 2017Q3

REPORT INFORMATION
  Report Type: Spontaneous
  Country: JP (occurrence: JP)
  Receive Date: 20170905
  Receipt Date: 20170919
  Transmission Date: 20171127
  Serious: Yes (Hospitalization)
  Sender: FDA-Public Use
  Company Number: JP-ELI_LILLY_AND_COMPANY-JP201709000066

PATIENT
  Age: 19 Year
  Sex: Female

DRUGS (5)
  1. STRATTERA [Suspect]
     Active Substance: ATOMOXETINE HYDROCHLORIDE
     Indication: ATTENTION DEFICIT/HYPERACTIVITY DISORDER
     Dosage: UNK
     Route: 048
     Dates: start: 20170216, end: 20170825
  2. TRYPTANOL                          /00002202/ [Concomitant]
     Active Substance: AMITRIPTYLINE
     Dosage: 25 MG
     Route: 065
     Dates: start: 20170112, end: 20170825
  3. SULPIRIDE [Concomitant]
     Active Substance: SULPIRIDE
     Dosage: 100 MG
     Route: 065
     Dates: start: 20170105, end: 20170825
  4. RIZE                               /00624801/ [Concomitant]
     Active Substance: CLOTIAZEPAM
     Dosage: 10 MG
     Route: 065
     Dates: start: 20170105, end: 20170825
  5. YOKUKANSAN [Concomitant]
     Active Substance: HERBALS
     Dosage: 7.5 G
     Route: 065
     Dates: start: 20170119, end: 20170825

REACTIONS (1)
  - Suicide attempt [Recovered/Resolved]

NARRATIVE: CASE EVENT DATE: 20170825
